FAERS Safety Report 9368500 (Version 1)
Quarter: 2013Q2

REPORT INFORMATION
  Report Type: Spontaneous
  Country: US (occurrence: US)
  Receive Date: 20130625
  Receipt Date: 20130625
  Transmission Date: 20140414
  Serious: No
  Sender: FDA-Public Use
  Company Number: US-ASTELLAS-2013US004623

PATIENT
  Age: 69 Year
  Sex: Female
  Weight: 81 kg

DRUGS (2)
  1. VESICARE [Suspect]
     Indication: HYPERTONIC BLADDER
     Dosage: 5 MG, UID/QD
     Route: 048
     Dates: start: 2012
  2. VESICARE [Suspect]
     Dosage: 10 MG, UNKNOWN/D
     Route: 048
     Dates: start: 2012

REACTIONS (1)
  - Rash macular [Not Recovered/Not Resolved]
